FAERS Safety Report 7820966-7 (Version None)
Quarter: 2011Q4

REPORT INFORMATION
  Report Type: 
  Country: None (occurrence: None)
  Receive Date: 20111018
  Receipt Date: 20100920
  Transmission Date: 20120403
  Serious: No
  Sender: FDA-Public Use
  Company Number: US-ASTRAZENECA-2010SE44108

PATIENT
  Age: 86 Year
  Sex: Female

DRUGS (15)
  1. MULTI-VITAMIN [Concomitant]
  2. CARDIZEM [Concomitant]
  3. NEURONTIN [Concomitant]
  4. REQUIP [Concomitant]
  5. COUMADIN [Concomitant]
  6. ANTIVERT [Concomitant]
  7. MAGNESIUM [Concomitant]
  8. CALCIUM CARBONATE [Concomitant]
  9. SINGULAIR [Concomitant]
  10. LASIX [Concomitant]
  11. SYMBICORT [Suspect]
     Indication: ASTHMA
     Dosage: 160/4.5 MCG THREE TIMES A DAY
     Route: 055
     Dates: start: 20100301
  12. ALBUTEROL [Concomitant]
  13. LIPITOR [Concomitant]
  14. LEVOTHROID [Concomitant]
  15. LORATADINE [Concomitant]

REACTIONS (1)
  - DYSPNOEA [None]
